FAERS Safety Report 8564434-6 (Version None)
Quarter: 2012Q3

REPORT INFORMATION
  Report Type: 
  Country: None (occurrence: None)
  Receive Date: 20120803
  Receipt Date: 20120727
  Transmission Date: 20120928
  Serious: No
  Sender: FDA-Public Use
  Company Number: US-ENDO PHARMACEUTICALS INC.-OPCR20121617

PATIENT
  Sex: Female

DRUGS (4)
  1. OPANA ER [Suspect]
     Indication: ARTHRITIS
     Route: 048
     Dates: start: 20120501
  2. OPANA ER [Suspect]
     Indication: INTERVERTEBRAL DISC DEGENERATION
     Route: 048
     Dates: start: 20120501
  3. OPANA ER [Concomitant]
     Route: 048
     Dates: end: 20120101
  4. OPANA ER [Concomitant]
     Route: 048
     Dates: end: 20120101

REACTIONS (5)
  - NAUSEA [None]
  - CHOKING [None]
  - DEPRESSION [None]
  - DRUG INEFFECTIVE [None]
  - VOMITING [None]
